FAERS Safety Report 8330354-5 (Version None)
Quarter: 2012Q2

REPORT INFORMATION
  Report Type: 
  Country: None (occurrence: None)
  Receive Date: 20120502
  Receipt Date: 20120430
  Transmission Date: 20120825
  Serious: No
  Sender: FDA-Public Use
  Company Number: US-PFIZER INC-2012106368

PATIENT
  Sex: Female
  Weight: 102.04 kg

DRUGS (5)
  1. LYRICA [Suspect]
     Indication: FIBROMYALGIA
     Dosage: 100 MG, 3X/DAY
     Route: 048
     Dates: start: 20111101, end: 20120101
  2. TOPROL-XL [Concomitant]
     Indication: HYPERTENSION
     Dosage: 50 MG, 2X/DAY
  3. NAPROXEN (ALEVE) [Concomitant]
     Indication: OSTEOARTHRITIS
     Dosage: UNK
  4. EFFEXOR [Concomitant]
     Indication: DEPRESSION
     Dosage: 75 MG, 4X/DAY
  5. LYRICA [Suspect]
     Dosage: 100 MG, 6X/DAY
     Route: 048
     Dates: start: 20120101

REACTIONS (3)
  - HYPOKINESIA [None]
  - SOMNOLENCE [None]
  - WEIGHT INCREASED [None]
